FAERS Safety Report 24076728 (Version 1)
Quarter: 2024Q3

REPORT INFORMATION
  Report Type: Spontaneous
  Country: GB (occurrence: GB)
  Receive Date: 20240711
  Receipt Date: 20240711
  Transmission Date: 20241016
  Serious: Yes (Other)
  Sender: AUROBINDO
  Company Number: GB-MHRA-MED-202405040555034480-WJKLS

PATIENT
  Age: 59 Year
  Sex: Male
  Weight: 90 kg

DRUGS (1)
  1. SILDENAFIL [Suspect]
     Active Substance: SILDENAFIL
     Indication: Product used for unknown indication
     Dosage: 50 MILLIGRAM, ONCE A DAY AT NIGHT
     Route: 065
     Dates: start: 20240201

REACTIONS (1)
  - Reperfusion injury [Recovered/Resolved]

NARRATIVE: CASE EVENT DATE: 20240201
